FAERS Safety Report 6888907-7 (Version None)
Quarter: 2010Q3

REPORT INFORMATION
  Report Type: 
  Country: None (occurrence: None)
  Receive Date: 20100730
  Receipt Date: 20071119
  Transmission Date: 20110219
  Serious: No
  Sender: FDA-Public Use
  Company Number: US-PFIZER INC-2007098280

PATIENT
  Sex: Male
  Weight: 81.8 kg

DRUGS (2)
  1. LIPITOR [Suspect]
     Indication: BLOOD CHOLESTEROL INCREASED
  2. ZESTRIL [Concomitant]
     Indication: HYPERTENSION

REACTIONS (1)
  - MYALGIA [None]
